FAERS Safety Report 6888994-6 (Version None)
Quarter: 2010Q3

REPORT INFORMATION
  Report Type: 
  Country: None (occurrence: None)
  Receive Date: 20100730
  Receipt Date: 20071205
  Transmission Date: 20110219
  Serious: No
  Sender: FDA-Public Use
  Company Number: US-PFIZER INC-2007028038

PATIENT
  Age: 72 Year
  Sex: Male

DRUGS (4)
  1. LIPITOR [Suspect]
  2. PRAVACHOL [Suspect]
  3. CRESTOR [Suspect]
  4. LESCOL [Suspect]

REACTIONS (2)
  - MYALGIA [None]
  - PAIN IN EXTREMITY [None]
